FAERS Safety Report 24541018 (Version 1)
Quarter: 2024Q4

REPORT INFORMATION
  Report Type: Spontaneous
  Country: US (occurrence: US)
  Receive Date: 20241023
  Receipt Date: 20241023
  Transmission Date: 20250114
  Serious: No
  Sender: JUBILANT
  Company Number: US-JUBILANT CADISTA PHARMACEUTICALS INC.-2023JUB00353

PATIENT
  Sex: Female
  Weight: 77.098 kg

DRUGS (2)
  1. PREDNISONE [Suspect]
     Active Substance: PREDNISONE
     Indication: COVID-19
     Dosage: 10 MG, 1X/DAY
     Dates: start: 202206, end: 2022
  2. METOPROLOL [Concomitant]
     Active Substance: METOPROLOL
     Dosage: 50 MG, 1X/DAY

REACTIONS (5)
  - Feeling jittery [Recovered/Resolved]
  - Nervousness [Recovered/Resolved]
  - Insomnia [Recovered/Resolved]
  - Heart rate increased [Recovered/Resolved]
  - Off label use [Recovered/Resolved]

NARRATIVE: CASE EVENT DATE: 20220101
